FAERS Safety Report 7603196-3 (Version None)
Quarter: 2011Q3

REPORT INFORMATION
  Report Type: 
  Country: None (occurrence: None)
  Receive Date: 20110712
  Receipt Date: 20110708
  Transmission Date: 20111222
  Serious: Yes (Death)
  Sender: FDA-Public Use
  Company Number: JP-SANOFI-AVENTIS-2011SA043528

PATIENT
  Sex: Male

DRUGS (1)
  1. TAXOTERE [Suspect]
     Route: 065
     Dates: start: 20110627, end: 20110627

REACTIONS (1)
  - HEPATORENAL FAILURE [None]
